FAERS Safety Report 7618081-0 (Version None)
Quarter: 2011Q3

REPORT INFORMATION
  Report Type: 
  Country: None (occurrence: None)
  Receive Date: 20110718
  Receipt Date: 20110711
  Transmission Date: 20111222
  Serious: Yes (Hospitalization)
  Sender: FDA-Public Use
  Company Number: CA-ABBOTT-10P-028-0690442-00

PATIENT
  Sex: Male
  Weight: 78.088 kg

DRUGS (3)
  1. PREDNISONE [Concomitant]
     Indication: CROHN'S DISEASE
     Dates: start: 20080101, end: 20101201
  2. HUMIRA [Suspect]
     Route: 058
     Dates: start: 20101201
  3. HUMIRA [Suspect]
     Indication: CROHN'S DISEASE
     Route: 058
     Dates: start: 20100924, end: 20101201

REACTIONS (1)
  - CROHN'S DISEASE [None]
